FAERS Safety Report 9188316 (Version 1)
Quarter: 2013Q1

REPORT INFORMATION
  Report Type: Spontaneous
  Country: US (occurrence: US)
  Receive Date: 20130325
  Receipt Date: 20130325
  Transmission Date: 20140127
  Serious: Yes (Other)
  Sender: FDA-Public Use
  Company Number: US-MYLANLABS-2012S1017505

PATIENT
  Age: 61 Year
  Sex: Male

DRUGS (9)
  1. FENTANYL TRANSDERMAL SYSTEM [Suspect]
     Indication: BACK PAIN
     Route: 062
     Dates: start: 2006, end: 2012
  2. FENTANYL TRANSDERMAL SYSTEM [Suspect]
     Indication: MUSCULOSKELETAL PAIN
     Route: 062
     Dates: start: 2006, end: 2012
  3. FENTANYL TRANSDERMAL SYSTEM [Suspect]
     Indication: BACK PAIN
     Dosage: Q48H
     Route: 062
     Dates: start: 201209
  4. FENTANYL TRANSDERMAL SYSTEM [Suspect]
     Indication: MUSCULOSKELETAL PAIN
     Dosage: Q48H
     Route: 062
     Dates: start: 201209
  5. FENTANYL TRANSDERMAL SYSTEM [Suspect]
     Indication: BACK PAIN
     Dosage: Q48H
     Route: 062
     Dates: start: 20120817, end: 201209
  6. FENTANYL TRANSDERMAL SYSTEM [Suspect]
     Indication: MUSCULOSKELETAL PAIN
     Dosage: Q48H
     Route: 062
     Dates: start: 20120817, end: 201209
  7. FISH OIL [Concomitant]
  8. CELEBREX [Concomitant]
     Indication: PAIN
  9. SERTRALINE [Concomitant]
     Indication: ANXIETY

REACTIONS (3)
  - Drug withdrawal syndrome [Recovered/Resolved]
  - Muscle spasms [Recovered/Resolved]
  - Drug dependence [Not Recovered/Not Resolved]
